FAERS Safety Report 7305097-7 (Version None)
Quarter: 2011Q1

REPORT INFORMATION
  Report Type: 
  Country: None (occurrence: None)
  Receive Date: 20110222
  Receipt Date: 20110207
  Transmission Date: 20110831
  Serious: Yes (Hospitalization, Other)
  Sender: FDA-Public Use
  Company Number: JP-ACTELION-A-CH2011-44788

PATIENT
  Sex: Female
  Weight: 49 kg

DRUGS (22)
  1. TRACLEER [Suspect]
     Dosage: 78.125 MG, BID
     Route: 048
     Dates: start: 20100122, end: 20100129
  2. SPIRONOLACTONE [Concomitant]
  3. ATORVASTATIN CALCIUM [Concomitant]
  4. FUROSEMIDE [Concomitant]
  5. TRACLEER [Suspect]
     Dosage: 62.5 MG, QD
     Route: 048
     Dates: start: 20091115, end: 20091127
  6. LOSARTAN POTASSIUM [Concomitant]
  7. OXYGEN [Concomitant]
  8. TRACLEER [Suspect]
     Dosage: 15.63 MG, QD
     Route: 048
     Dates: start: 20091026, end: 20091030
  9. TRACLEER [Suspect]
     Dosage: 31.25 MG, QD
     Route: 048
     Dates: start: 20091031, end: 20091106
  10. TRACLEER [Suspect]
     Dosage: 46.88 MG, QD
     Route: 048
     Dates: start: 20091107, end: 20091114
  11. AMBROXOL HYDROCHLORIDE [Concomitant]
  12. DEXTROMETHORPHAN HYDROBROMIDE [Concomitant]
  13. TRACLEER [Suspect]
     Indication: PULMONARY ARTERIAL HYPERTENSION
     Dosage: 125 MG, BID
     Route: 048
     Dates: start: 20100422, end: 20100826
  14. TRACLEER [Suspect]
     Dosage: 46.875 MG, BID
     Route: 048
     Dates: start: 20091128, end: 20091214
  15. CAPTOPRIL [Concomitant]
  16. TRACLEER [Suspect]
     Dosage: 93.75 MG, BID
     Route: 048
     Dates: start: 20100130, end: 20100421
  17. REBAMIPIDE [Concomitant]
  18. CARBOCISTEINE [Concomitant]
  19. TRACLEER [Suspect]
     Dosage: 62.5 MG, BID
     Route: 048
     Dates: start: 20091215, end: 20100121
  20. BERAPROST SODIUM [Concomitant]
  21. RABEPRAZOLE SODIUM [Concomitant]
  22. TRACLEER [Suspect]
     Dosage: 62.5 MG, BID
     Route: 048
     Dates: start: 20100827

REACTIONS (2)
  - CARDIAC FAILURE CHRONIC [None]
  - HEPATIC FUNCTION ABNORMAL [None]
